FAERS Safety Report 5134425-6 (Version None)
Quarter: 2006Q4

REPORT INFORMATION
  Report Type: 
  Country: None (occurrence: None)
  Receive Date: 20061023
  Receipt Date: 20061023
  Transmission Date: 20070319
  Serious: Yes (Other)
  Sender: FDA-Public Use
  Company Number: None

PATIENT
  Age: 48 Year
  Sex: Male
  Weight: 82.1011 kg

DRUGS (1)
  1. DICLOFENAC 50 MG GEQ [Suspect]
     Indication: ANKYLOSING SPONDYLITIS
     Dosage: 100 MG BID PO
     Route: 048
     Dates: start: 20050601, end: 20050801

REACTIONS (2)
  - DRUG INEFFECTIVE [None]
  - PHARMACEUTICAL PRODUCT COMPLAINT [None]
